FAERS Safety Report 9448050 (Version 1)
Quarter: 2013Q3

REPORT INFORMATION
  Report Type: Spontaneous
  Country: US (occurrence: US)
  Receive Date: 20130808
  Receipt Date: 20130808
  Transmission Date: 20140515
  Serious: No
  Sender: FDA-Public Use
  Company Number: US-BAYER-2013-092264

PATIENT
  Age: 41 Year
  Sex: Male

DRUGS (1)
  1. STIVARGA [Suspect]
     Indication: COLORECTAL CANCER METASTATIC
     Dosage: 160 MG/DAY (FOR 21 DAYS, THEN OFF FOR 7)
     Route: 048

REACTIONS (2)
  - Faecal incontinence [None]
  - Urinary incontinence [None]
